FAERS Safety Report 15352197 (Version 1)
Quarter: 2018Q3

REPORT INFORMATION
  Report Type: Spontaneous
  Country: IL (occurrence: IL)
  Receive Date: 20180905
  Receipt Date: 20180905
  Transmission Date: 20181010
  Serious: Yes (Other)
  Sender: FDA-Public Use
  Company Number: IL-PFIZER INC-2018351452

PATIENT
  Age: 45 Year
  Sex: Female

DRUGS (8)
  1. NOVORAPID [Concomitant]
     Active Substance: INSULIN ASPART
  2. LANTUS [Concomitant]
     Active Substance: INSULIN GLARGINE
  3. TYGACIL [Suspect]
     Active Substance: TIGECYCLINE
  4. VIEPAX [Concomitant]
     Active Substance: VENLAFAXINE HYDROCHLORIDE
  5. LYRICA [Concomitant]
     Active Substance: PREGABALIN
  6. PREDNISONE. [Concomitant]
     Active Substance: PREDNISONE
  7. ADVAGRAF [Concomitant]
     Active Substance: TACROLIMUS
  8. BARACLUDE [Concomitant]
     Active Substance: ENTECAVIR

REACTIONS (2)
  - Blood fibrinogen decreased [Unknown]
  - Coagulation time prolonged [Unknown]
